FAERS Safety Report 7368635-4 (Version None)
Quarter: 2011Q1

REPORT INFORMATION
  Report Type: 
  Country: None (occurrence: None)
  Receive Date: 20110323
  Receipt Date: 20110314
  Transmission Date: 20110831
  Serious: Yes (Hospitalization)
  Sender: FDA-Public Use
  Company Number: FR-NOVOPROD-322611

PATIENT
  Age: 82 Year
  Sex: Female

DRUGS (6)
  1. PENTASA [Concomitant]
     Indication: CONGENITAL CYSTIC KIDNEY DISEASE
     Dosage: 2 G, QD
     Route: 048
  2. DIAMICRON [Concomitant]
     Indication: DIABETES MELLITUS
     Dosage: 160 MG, QD
     Route: 048
  3. VICTOZA [Suspect]
     Indication: TYPE 2 DIABETES MELLITUS
     Dosage: 0.6 MG, QD
     Route: 058
     Dates: start: 20100703, end: 20100710
  4. ZYLORIC [Concomitant]
     Dosage: 20 MG, QD
     Route: 048
  5. FLUOXETINE [Concomitant]
     Dosage: 20 MG, QD
     Route: 048
  6. TELFAST [Concomitant]
     Dosage: 180 MG, QD
     Route: 048

REACTIONS (2)
  - BRONCHITIS [None]
  - RHINITIS [None]
